FAERS Safety Report 8192693-0 (Version None)
Quarter: 2012Q1

REPORT INFORMATION
  Report Type: 
  Country: None (occurrence: None)
  Receive Date: 20120221
  Receipt Date: 20111111
  Transmission Date: 20120608
  Serious: No
  Sender: FDA-Public Use
  Company Number: 1000025426

PATIENT
  Age: 75 Year
  Sex: Female

DRUGS (10)
  1. VITAMIN B-12 (CYANOCOBALAMIN) (CYANOCOBALAMIN) [Concomitant]
  2. OMEGA 3 FISH OIL (FISH OIL) (FISH OIL) [Concomitant]
  3. VITAMIN B COMPLEX (VITAMI B COMPLEX) (VITAMIN B COMPLEX) [Concomitant]
  4. FAMOTIDINE [Concomitant]
  5. GLUCOSAMIDE CHONDROITIN (GLUCOSAMINE CHONDROITIN) (GLUCOSAMINE CHONDRO [Concomitant]
  6. VIIBRYD [Suspect]
     Indication: DEPRESSION
     Dosage: 10 MG (10 MG, 1 IN 1), ORAL; 20 MG (20 MG, 1 IN 1 D),ORAL; 40 MG (40 MG, 1 IN 1 D), ORAL
     Route: 048
     Dates: start: 20110914, end: 20111004
  7. VIIBRYD [Suspect]
     Indication: DEPRESSION
     Dosage: 10 MG (10 MG, 1 IN 1), ORAL; 20 MG (20 MG, 1 IN 1 D),ORAL; 40 MG (40 MG, 1 IN 1 D), ORAL
     Route: 048
     Dates: start: 20111005, end: 20111016
  8. VIIBRYD [Suspect]
     Indication: DEPRESSION
     Dosage: 10 MG (10 MG, 1 IN 1), ORAL; 20 MG (20 MG, 1 IN 1 D),ORAL; 40 MG (40 MG, 1 IN 1 D), ORAL
     Route: 048
     Dates: start: 20111017
  9. VITAMIN B6 (PYRIDOXINE HYDROCHLORIDE) (PYRIDOXINE HYDROCHLORIDE) [Concomitant]
  10. CALCIUM CITRATE (CALCIUM CITRATE) (CALCIUM CITRATE) [Concomitant]

REACTIONS (13)
  - INSOMNIA [None]
  - HEADACHE [None]
  - NERVOUSNESS [None]
  - TREMOR [None]
  - DEPRESSION [None]
  - AMNESIA [None]
  - CONFUSIONAL STATE [None]
  - BALANCE DISORDER [None]
  - ABDOMINAL DISCOMFORT [None]
  - ANXIETY [None]
  - VISION BLURRED [None]
  - FACE OEDEMA [None]
  - SWELLING FACE [None]
